FAERS Safety Report 15502589 (Version 1)
Quarter: 2018Q4

REPORT INFORMATION
  Report Type: Spontaneous
  Country: US (occurrence: US)
  Receive Date: 20181008
  Receipt Date: 20181008
  Transmission Date: 20190205
  Serious: No
  Sender: FDA-Public Use
  Company Number: None

PATIENT
  Age: 20 Year
  Sex: Female
  Weight: 83.5 kg

DRUGS (1)
  1. LABETALOL [Suspect]
     Active Substance: LABETALOL\LABETALOL HYDROCHLORIDE
     Indication: HYPERTENSION
     Dosage: ?          OTHER ROUTE:IV PUSH?
     Dates: start: 20181003, end: 20181003

REACTIONS (3)
  - Blood pressure increased [None]
  - Haemodynamic instability [None]
  - Haemorrhage [None]

NARRATIVE: CASE EVENT DATE: 20181003
